FAERS Safety Report 7284209-8 (Version None)
Quarter: 2011Q1

REPORT INFORMATION
  Report Type: 
  Country: None (occurrence: None)
  Receive Date: 20110209
  Receipt Date: 20110204
  Transmission Date: 20110831
  Serious: No
  Sender: FDA-Public Use
  Company Number: US-PFIZER INC-2011026255

PATIENT
  Sex: Female
  Weight: 63.492 kg

DRUGS (1)
  1. EFFEXOR [Suspect]
     Indication: MAJOR DEPRESSION
     Dosage: 37.5 MG, DAILY
     Route: 048
     Dates: start: 20110201

REACTIONS (5)
  - NAUSEA [None]
  - HYPOAESTHESIA [None]
  - YAWNING [None]
  - PARAESTHESIA [None]
  - FATIGUE [None]
